FAERS Safety Report 9653489 (Version 1)
Quarter: 2013Q4

REPORT INFORMATION
  Report Type: Spontaneous
  Country: US (occurrence: US)
  Receive Date: 20131029
  Receipt Date: 20131029
  Transmission Date: 20140711
  Serious: No
  Sender: FDA-Public Use
  Company Number: US-TEVA-440971USA

PATIENT
  Sex: Male
  Weight: 63.56 kg

DRUGS (1)
  1. NUVIGIL [Suspect]
     Indication: CIRCADIAN RHYTHM SLEEP DISORDER
     Dosage: 1/2 OF A 250 MG TABLET

REACTIONS (2)
  - Muscle spasms [Not Recovered/Not Resolved]
  - Incorrect dose administered [Unknown]
